FAERS Safety Report 8327799-6 (Version None)
Quarter: 2012Q2

REPORT INFORMATION
  Report Type: 
  Country: None (occurrence: None)
  Receive Date: 20120502
  Receipt Date: 20120427
  Transmission Date: 20120825
  Serious: Yes (Other)
  Sender: FDA-Public Use
  Company Number: US-PFIZER INC-2012105347

PATIENT
  Sex: Male

DRUGS (6)
  1. LYRICA [Suspect]
     Indication: NEUROPATHY PERIPHERAL
     Dosage: 25 MG, DAILY
     Route: 048
     Dates: start: 20120425, end: 20120425
  2. LYRICA [Suspect]
     Indication: FIBROMYALGIA
  3. MORPHINE [Concomitant]
     Dosage: UNK
  4. ARICEPT [Concomitant]
     Indication: MEMORY IMPAIRMENT
     Dosage: 5 MG, DAILY
  5. OMEPRAZOLE [Concomitant]
     Indication: DYSPEPSIA
     Dosage: 20 MG, DAILY
  6. BUPROPION HCL [Suspect]
     Indication: DEPRESSION
     Dosage: 325 MG, DAILY

REACTIONS (2)
  - DEPRESSION [None]
  - SUICIDAL IDEATION [None]
